FAERS Safety Report 24046757 (Version 4)
Quarter: 2025Q1

REPORT INFORMATION
  Report Type: Spontaneous
  Country: US (occurrence: US)
  Receive Date: 20240703
  Receipt Date: 20250115
  Transmission Date: 20250408
  Serious: Yes (Hospitalization, Other)
  Sender: SANOFI AVENTIS
  Company Number: US-SA-SAC20240703000170

PATIENT
  Age: 66 Year
  Sex: Female

DRUGS (35)
  1. DUPIXENT [Suspect]
     Active Substance: DUPILUMAB
     Indication: Asthma
     Dosage: 300 MG, QOW
     Route: 058
     Dates: start: 2021
  2. ALLOPURINOL [Concomitant]
     Active Substance: ALLOPURINOL
  3. FOLIC ACID [Concomitant]
     Active Substance: FOLIC ACID
  4. METHOTREXATE [Concomitant]
     Active Substance: METHOTREXATE
  5. PREDNISONE [Concomitant]
     Active Substance: PREDNISONE
  6. FUROSEMIDE [Concomitant]
     Active Substance: FUROSEMIDE
     Dosage: UNK, QOW
  7. GABAPENTIN [Concomitant]
     Active Substance: GABAPENTIN
  8. TRAMADOL HCL [Concomitant]
     Active Substance: TRAMADOL HYDROCHLORIDE
  9. ALBUTEROL SULFATE [Concomitant]
     Active Substance: ALBUTEROL SULFATE
  10. AZELASTINE HYDROCHLORIDE [Concomitant]
     Active Substance: AZELASTINE HYDROCHLORIDE
  11. CLONIDINE HYDROCHLORIDE [Concomitant]
     Active Substance: CLONIDINE HYDROCHLORIDE
  12. LACTULOSE [Concomitant]
     Active Substance: LACTULOSE
  13. LORATADINE [Concomitant]
     Active Substance: LORATADINE
  14. MELOXICAM [Concomitant]
     Active Substance: MELOXICAM
  15. OLOPATADINE [Concomitant]
     Active Substance: OLOPATADINE
  16. TYLENOL [Concomitant]
     Active Substance: ACETAMINOPHEN
  17. VITAMIN B [Concomitant]
     Active Substance: VITAMIN B
  18. GABAPENTIN [Concomitant]
     Active Substance: GABAPENTIN
  19. FOLIC ACID [Concomitant]
     Active Substance: FOLIC ACID
  20. CARVEDILOL [Concomitant]
     Active Substance: CARVEDILOL
  21. ESCITALOPRAM [Concomitant]
     Active Substance: ESCITALOPRAM OXALATE
  22. VALSARTAN [HYDROCHLOROTHIAZIDE;VALSARTAN] [Concomitant]
  23. VITAMIN D NOS [Concomitant]
     Active Substance: CHOLECALCIFEROL\ERGOCALCIFEROL
  24. CLONAZEPAM [Concomitant]
     Active Substance: CLONAZEPAM
  25. FERROUS SULFATE [Concomitant]
     Active Substance: FERROUS SULFATE
  26. MONTELUKAST [Concomitant]
     Active Substance: MONTELUKAST
  27. SIMVASTATIN [Concomitant]
     Active Substance: SIMVASTATIN
  28. VENTOLIN HFA [Concomitant]
     Active Substance: ALBUTEROL SULFATE
  29. BACLOFEN [Concomitant]
     Active Substance: BACLOFEN
  30. FLUTICASONE PROPIONATE [Concomitant]
     Active Substance: FLUTICASONE PROPIONATE
  31. AMMONIUM LACTATE [Concomitant]
     Active Substance: AMMONIUM LACTATE
  32. CHLORTHALIDONE [Concomitant]
     Active Substance: CHLORTHALIDONE
  33. BUPRENORPHINE [Concomitant]
     Active Substance: BUPRENORPHINE
  34. METFORMIN HYDROCHLORIDE [Concomitant]
     Active Substance: METFORMIN HYDROCHLORIDE
  35. .ALPHA.-TOCOPHEROL [Concomitant]
     Active Substance: .ALPHA.-TOCOPHEROL

REACTIONS (15)
  - Cerebrovascular accident [Not Recovered/Not Resolved]
  - Pneumonia [Not Recovered/Not Resolved]
  - Cough [Not Recovered/Not Resolved]
  - Sputum discoloured [Not Recovered/Not Resolved]
  - Diabetes mellitus [Not Recovered/Not Resolved]
  - Renal failure [Not Recovered/Not Resolved]
  - Hospitalisation [Unknown]
  - Hypotension [Not Recovered/Not Resolved]
  - Asthma [Unknown]
  - Lymphoedema [Not Recovered/Not Resolved]
  - Gout [Not Recovered/Not Resolved]
  - Sinus disorder [Not Recovered/Not Resolved]
  - Fatigue [Not Recovered/Not Resolved]
  - Blister [Recovered/Resolved]
  - Ear infection [Recovered/Resolved]

NARRATIVE: CASE EVENT DATE: 20240625
